FAERS Safety Report 4642792-2 (Version None)
Quarter: 2005Q2

REPORT INFORMATION
  Report Type: 
  Country: None (occurrence: None)
  Receive Date: 20050421
  Receipt Date: 20050411
  Transmission Date: 20051028
  Serious: Yes (Hospitalization)
  Sender: FDA-Public Use
  Company Number: GXKR2005AT00885

PATIENT
  Age: 82 Year
  Sex: Male

DRUGS (2)
  1. AMOXICILLIN + CLAVULANATE POTASSIUM (NGX) (AMOXICILLIN, CLAVULANATE) [Suspect]
     Indication: ABDOMINAL PAIN
  2. FUROSEMIDE [Suspect]

REACTIONS (9)
  - BLOOD FIBRINOGEN INCREASED [None]
  - C-REACTIVE PROTEIN INCREASED [None]
  - CLOSTRIDIUM COLITIS [None]
  - DEHYDRATION [None]
  - GASTROENTERITIS [None]
  - GENERAL PHYSICAL HEALTH DETERIORATION [None]
  - RENAL FAILURE ACUTE [None]
  - THERAPY NON-RESPONDER [None]
  - WHITE BLOOD CELL COUNT INCREASED [None]
